FAERS Safety Report 4582586-X (Version None)
Quarter: 2005Q1

REPORT INFORMATION
  Report Type: 
  Country: None (occurrence: None)
  Receive Date: 20050211
  Receipt Date: 20050211
  Transmission Date: 20050727
  Serious: Yes (Death)
  Sender: FDA-Public Use
  Company Number: None

PATIENT
  Age: 39 Year
  Sex: Male
  Weight: 107.0489 kg

DRUGS (3)
  1. ZYPREXA [Suspect]
     Indication: SCHIZOPHRENIA
     Dosage: 1 TABL/D/ PRECRIBED AND TAKEN DAILY SINCE 6/02
     Dates: start: 20020601
  2. TOPAMAX [Concomitant]
  3. COGENTIN [Concomitant]

REACTIONS (3)
  - CARDIAC DISORDER [None]
  - HYPERTENSION [None]
  - SUDDEN DEATH [None]
